FAERS Safety Report 5060738-2 (Version None)
Quarter: 2006Q3

REPORT INFORMATION
  Report Type: 
  Country: None (occurrence: None)
  Receive Date: 20060721
  Receipt Date: 20060721
  Transmission Date: 20061208
  Serious: Yes (Death)
  Sender: FDA-Public Use
  Company Number: None

PATIENT
  Age: 49 Year
  Sex: Female
  Weight: 86.1834 kg

DRUGS (6)
  1. ALPRAZOLAM [Suspect]
     Indication: ANXIETY
     Dosage: 1 MG  8 TIMES A DAY  PO
     Route: 048
     Dates: start: 19960101, end: 20060418
  2. ALPRAZOLAM [Suspect]
     Indication: BIPOLAR DISORDER
     Dosage: 1 MG  8 TIMES A DAY  PO
     Route: 048
     Dates: start: 19960101, end: 20060418
  3. SEROQUEL [Concomitant]
  4. RISPERDAL [Concomitant]
  5. NEURONTIN [Concomitant]
  6. LAMICTAL [Concomitant]

REACTIONS (5)
  - ACCIDENTAL DEATH [None]
  - CLUMSINESS [None]
  - DIZZINESS [None]
  - DRUG INTERACTION [None]
  - DRUG TOXICITY [None]
